FAERS Safety Report 7325158-6 (Version None)
Quarter: 2011Q1

REPORT INFORMATION
  Report Type: 
  Country: None (occurrence: None)
  Receive Date: 20110302
  Receipt Date: 20110223
  Transmission Date: 20110831
  Serious: Yes (Death, Life-Threatening, Hospitalization, Other)
  Sender: FDA-Public Use
  Company Number: PHHY2011US04763

PATIENT
  Sex: Female
  Weight: 51.247 kg

DRUGS (5)
  1. EXJADE [Suspect]
     Indication: MYELODYSPLASTIC SYNDROME
     Dosage: 500 MG, QD
     Route: 048
  2. ARANESP [Concomitant]
     Indication: ANAEMIA
     Dosage: EVERY WEEKLY
     Route: 042
  3. LEVOTHYROXINE [Concomitant]
     Indication: HYPOTHYROIDISM
     Dosage: 88 UG, QD
     Route: 048
  4. ARANESP [Concomitant]
     Indication: MYELODYSPLASTIC SYNDROME
  5. BONIVA [Concomitant]
     Indication: OSTEOPOROSIS
     Dosage: 150 MG, QMO
     Route: 048

REACTIONS (30)
  - DECREASED APPETITE [None]
  - PALLOR [None]
  - CARDIAC FAILURE CONGESTIVE [None]
  - DYSPNOEA [None]
  - TERMINAL STATE [None]
  - MALAISE [None]
  - LIVER FUNCTION TEST ABNORMAL [None]
  - PLEURAL EFFUSION [None]
  - PANCREATITIS CHRONIC [None]
  - COUGH [None]
  - METABOLIC ACIDOSIS [None]
  - DEHYDRATION [None]
  - TRANSAMINASES INCREASED [None]
  - ATELECTASIS [None]
  - PANCREATIC ATROPHY [None]
  - RENAL FAILURE ACUTE [None]
  - NAUSEA [None]
  - ASCITES [None]
  - AORTIC CALCIFICATION [None]
  - PLATELET COUNT DECREASED [None]
  - HEPATIC FAILURE [None]
  - FATIGUE [None]
  - INTERNATIONAL NORMALISED RATIO INCREASED [None]
  - CARDIOMEGALY [None]
  - ASTHENIA [None]
  - JAUNDICE [None]
  - ABDOMINAL PAIN [None]
  - ADRENAL DISORDER [None]
  - VOMITING [None]
  - DIARRHOEA [None]
